FAERS Safety Report 7626539-3 (Version None)
Quarter: 2011Q3

REPORT INFORMATION
  Report Type: 
  Country: None (occurrence: None)
  Receive Date: 20110721
  Receipt Date: 20110628
  Transmission Date: 20111222
  Serious: Yes (Hospitalization)
  Sender: FDA-Public Use
  Company Number: US-GLAXOSMITHKLINE-A0912365A

PATIENT
  Age: 73 Year
  Sex: Male
  Weight: 85 kg

DRUGS (20)
  1. AVANDIA [Suspect]
     Indication: DIABETES MELLITUS
     Dosage: 4MG PER DAY
     Route: 048
     Dates: start: 20010801, end: 20071001
  2. FLOMAX [Concomitant]
  3. VASOTEC [Concomitant]
  4. SPIRIVA [Concomitant]
  5. ZOCOR [Concomitant]
  6. COUMADIN [Concomitant]
  7. ZETIA [Concomitant]
  8. ALBUTEROL SULFATE AUTOHALER [Concomitant]
  9. PULMICORT [Concomitant]
  10. ASPIRIN [Concomitant]
  11. LASIX [Concomitant]
  12. LOVAZA [Concomitant]
  13. FLONASE [Concomitant]
  14. SELENIUM [Concomitant]
  15. PLAVIX [Concomitant]
  16. LANOXIN [Concomitant]
  17. VITAMIN E [Concomitant]
  18. COMBIVENT [Concomitant]
  19. PRIMACOR [Concomitant]
  20. CRESTOR [Concomitant]

REACTIONS (4)
  - STENT PLACEMENT [None]
  - MYOCARDIAL INFARCTION [None]
  - CORONARY ARTERY BYPASS [None]
  - ISCHAEMIC CARDIOMYOPATHY [None]
